FAERS Safety Report 18692135 (Version 3)
Quarter: 2021Q1

REPORT INFORMATION
  Report Type: Report from Study
  Country: US (occurrence: US)
  Receive Date: 20210102
  Receipt Date: 20210219
  Transmission Date: 20210419
  Serious: No
  Sender: FDA-Public Use
  Company Number: NVSC2020US335766

PATIENT
  Age: 69 Year
  Sex: Male

DRUGS (3)
  1. BUMETANIDE. [Concomitant]
     Active Substance: BUMETANIDE
     Indication: FLUID RETENTION
     Dosage: UNK
     Route: 065
     Dates: start: 202010
  2. FUROSEMIDE. [Concomitant]
     Active Substance: FUROSEMIDE
     Indication: FLUID RETENTION
     Dosage: UNK
     Route: 065
  3. ENTRESTO [Suspect]
     Active Substance: SACUBITRIL\VALSARTAN
     Indication: CARDIAC FAILURE
     Dosage: 50 MG, BID (24/26 MG)
     Route: 048
     Dates: start: 202010

REACTIONS (10)
  - Increased appetite [Unknown]
  - Product dose omission issue [Unknown]
  - Ventricular extrasystoles [Unknown]
  - Decreased appetite [Unknown]
  - Feeling jittery [Unknown]
  - Headache [Unknown]
  - Weight decreased [Unknown]
  - Hypotension [Unknown]
  - Sluggishness [Unknown]
  - Dizziness [Unknown]

NARRATIVE: CASE EVENT DATE: 202010
